FAERS Safety Report 15315952 (Version 1)
Quarter: 2018Q4

REPORT INFORMATION
  Report Type: Spontaneous
  Country: US (occurrence: US)
  Receive Date: 20180824
  Receipt Date: 20180824
  Transmission Date: 20190204
  Serious: No
  Sender: FDA-Public Use
  Company Number: US-ASTRAZENECA-2012BM08717

PATIENT
  Age: 22194 Day
  Sex: Female

DRUGS (5)
  1. BYDUREON [Suspect]
     Active Substance: EXENATIDE
     Indication: BLOOD GLUCOSE ABNORMAL
     Route: 058
     Dates: start: 20120430
  2. BYDUREON BCISE [Suspect]
     Active Substance: EXENATIDE
     Indication: BLOOD GLUCOSE ABNORMAL
     Route: 058
     Dates: start: 2018
  3. BYDUREON [Suspect]
     Active Substance: EXENATIDE
     Indication: TYPE 2 DIABETES MELLITUS
     Route: 058
     Dates: start: 20120430
  4. BYDUREON BCISE [Suspect]
     Active Substance: EXENATIDE
     Indication: BLOOD GLUCOSE FLUCTUATION
     Route: 058
     Dates: start: 2018
  5. BYDUREON [Suspect]
     Active Substance: EXENATIDE
     Indication: BLOOD GLUCOSE FLUCTUATION
     Route: 058
     Dates: start: 20120430

REACTIONS (6)
  - Blood glucose increased [Not Recovered/Not Resolved]
  - Glucose tolerance impaired [Unknown]
  - Device leakage [Unknown]
  - Fatigue [Unknown]
  - Weight decreased [Unknown]
  - Device malfunction [Unknown]

NARRATIVE: CASE EVENT DATE: 20120430
